FAERS Safety Report 15706482 (Version 1)
Quarter: 2018Q4

REPORT INFORMATION
  Report Type: Report from Study
  Country: DK (occurrence: DK)
  Receive Date: 20181210
  Receipt Date: 20181210
  Transmission Date: 20190205
  Serious: Yes (Hospitalization)
  Sender: FDA-Public Use
  Company Number: DK-NOVOPROD-586400

PATIENT
  Age: 28 Year
  Sex: Female
  Weight: 81.3 kg

DRUGS (7)
  1. APIDRA [Suspect]
     Active Substance: INSULIN GLULISINE
     Indication: TYPE 1 DIABETES MELLITUS
     Dosage: 17 IU, QD
     Route: 058
     Dates: start: 201607
  2. GRAVITAMON [Concomitant]
  3. TRESIBA [Suspect]
     Active Substance: INSULIN DEGLUDEC
     Indication: TYPE 1 DIABETES MELLITUS
     Dosage: 12 IU, QD
     Route: 058
     Dates: start: 201702
  4. APIDRA [Suspect]
     Active Substance: INSULIN GLULISINE
     Dosage: 45 IU, QD
     Route: 058
  5. TRESIBA [Suspect]
     Active Substance: INSULIN DEGLUDEC
     Dosage: 30 IU, QD
     Route: 058
  6. NOVORAPID [Concomitant]
     Active Substance: INSULIN ASPART
     Indication: TYPE 1 DIABETES MELLITUS
     Dosage: UNK
     Route: 058
     Dates: start: 20171126, end: 20171127
  7. APIDRA [Suspect]
     Active Substance: INSULIN GLULISINE
     Dosage: 40 IU, QD
     Route: 058

REACTIONS (4)
  - Hydronephrosis [Recovered/Resolved]
  - Polyhydramnios [Recovered/Resolved]
  - Decreased insulin requirement [Recovered/Resolved]
  - Exposure during pregnancy [Recovered/Resolved]

NARRATIVE: CASE EVENT DATE: 20170505
